FAERS Safety Report 5738804-5 (Version None)
Quarter: 2008Q2

REPORT INFORMATION
  Report Type: 
  Country: None (occurrence: None)
  Receive Date: 20080515
  Receipt Date: 20080422
  Transmission Date: 20081010
  Serious: No
  Sender: FDA-Public Use
  Company Number: A0714991A

PATIENT
  Age: 54 Year
  Sex: Male

DRUGS (2)
  1. VERAMYST [Suspect]
     Indication: MULTIPLE ALLERGIES
     Route: 045
     Dates: start: 20080101, end: 20080301
  2. NO CONCURRENT MEDICATION [Concomitant]

REACTIONS (4)
  - EPISTAXIS [None]
  - MEDICAL DEVICE CHANGE [None]
  - PHARMACEUTICAL PRODUCT COMPLAINT [None]
  - SKIN LACERATION [None]
